FAERS Safety Report 19081721 (Version 1)
Quarter: 2021Q2

REPORT INFORMATION
  Report Type: Spontaneous
  Country: FR (occurrence: FR)
  Receive Date: 20210401
  Receipt Date: 20210401
  Transmission Date: 20210717
  Serious: Yes (Life-Threatening)
  Sender: FDA-Public Use
  Company Number: FR-TEVA-2021-FR-1896309

PATIENT
  Age: 33 Year
  Sex: Male
  Weight: 123.5 kg

DRUGS (5)
  1. HALDOL 20 MG/ML, SOLUTION BUVABLE [Concomitant]
     Route: 048
  2. DIAZEPAM. [Concomitant]
     Active Substance: DIAZEPAM
     Route: 048
  3. CYAMEMAZINE MYLAN 25 MG, COMPRIME PELLICULE SECABLE [Concomitant]
     Route: 048
  4. LEPTICUR 10 MG, COMPRIME [Concomitant]
     Active Substance: TROPATEPINE HYDROCHLORIDE
     Route: 048
  5. QUETIAPINE. [Suspect]
     Active Substance: QUETIAPINE
     Indication: SCHIZOPHRENIA
     Dosage: 800 MG
     Route: 048
     Dates: start: 201810

REACTIONS (1)
  - Congestive cardiomyopathy [Not Recovered/Not Resolved]

NARRATIVE: CASE EVENT DATE: 202012
